FAERS Safety Report 18081534 (Version 2)
Quarter: 2021Q2

REPORT INFORMATION
  Report Type: Spontaneous
  Country: US (occurrence: US)
  Receive Date: 20200728
  Receipt Date: 20210629
  Transmission Date: 20210717
  Serious: Yes (Hospitalization)
  Sender: FDA-Public Use
  Company Number: US-TEVA-2020-US-1806018

PATIENT

DRUGS (1)
  1. MEXILETINE [Suspect]
     Active Substance: MEXILETINE
     Indication: CANCER PAIN
     Dosage: 800 MILLIGRAM DAILY;
     Route: 048

REACTIONS (4)
  - Delirium [Unknown]
  - Hallucination [Unknown]
  - Confusional state [Unknown]
  - Agitation [Unknown]
